FAERS Safety Report 15363455 (Version 2)
Quarter: 2018Q4

REPORT INFORMATION
  Report Type: Spontaneous
  Country: US (occurrence: US)
  Receive Date: 20180907
  Receipt Date: 20181031
  Transmission Date: 20190204
  Serious: Yes (Hospitalization)
  Sender: FDA-Public Use
  Company Number: US-BAUSCH-BL-2018-024122

PATIENT
  Age: 13 Year
  Sex: Male

DRUGS (11)
  1. MEPHYTON [Suspect]
     Active Substance: PHYTONADIONE
     Indication: PRODUCT USE IN UNAPPROVED INDICATION
  2. CREON [Concomitant]
     Active Substance: PANCRELIPASE AMYLASE\PANCRELIPASE LIPASE\PANCRELIPASE PROTEASE
     Indication: PRODUCT USED FOR UNKNOWN INDICATION
     Dates: start: 20150403
  3. MEPHYTON [Suspect]
     Active Substance: PHYTONADIONE
     Indication: CYSTIC FIBROSIS
     Route: 048
     Dates: start: 20171026
  4. PULMOZYME [Suspect]
     Active Substance: DORNASE ALFA
     Indication: CYSTIC FIBROSIS
     Dosage: INHALE 2.5 ML DAILY
     Route: 055
     Dates: start: 20150630
  5. FLUTICASONE. [Suspect]
     Active Substance: FLUTICASONE
     Indication: CYSTIC FIBROSIS
     Dosage: USE 1 SPRAY IN EACH NOSTRILS
     Route: 045
     Dates: start: 20160308
  6. OMEPRAZOLE. [Suspect]
     Active Substance: OMEPRAZOLE
     Indication: CYSTIC FIBROSIS
     Route: 048
     Dates: start: 20150403
  7. PERTZYE [Suspect]
     Active Substance: PANCRELIPASE AMYLASE\PANCRELIPASE LIPASE\PANCRELIPASE PROTEASE
     Indication: CYSTIC FIBROSIS
     Dosage: THREE CAPSULES WITH MEALS AND TWO CAPSULES WITH SNACKS
     Route: 048
     Dates: start: 20171018
  8. POLYETHYLENE GLYCOL 3350. [Suspect]
     Active Substance: POLYETHYLENE GLYCOL 3350
     Indication: CYSTIC FIBROSIS
     Route: 048
     Dates: start: 20171128
  9. URSODIOL. [Suspect]
     Active Substance: URSODIOL
     Indication: CYSTIC FIBROSIS
     Route: 048
     Dates: start: 20171026
  10. AZTREONAM LYSINE [Suspect]
     Active Substance: AZTREONAM LYSINE
     Indication: CYSTIC FIBROSIS
     Dosage: FOR 28 DAYS ON AND 28 DAYS OFF
     Route: 055
     Dates: start: 20150408
  11. VITAMIN D3 [Suspect]
     Active Substance: CHOLECALCIFEROL
     Indication: CYSTIC FIBROSIS
     Route: 048
     Dates: start: 20171026

REACTIONS (2)
  - Product use in unapproved indication [Not Recovered/Not Resolved]
  - Constipation [Unknown]

NARRATIVE: CASE EVENT DATE: 20171026
